FAERS Safety Report 4352942-3 (Version None)
Quarter: 2004Q2

REPORT INFORMATION
  Report Type: 
  Country: None (occurrence: None)
  Receive Date: 20040429
  Receipt Date: 20040415
  Transmission Date: 20050107
  Serious: Yes (Life-Threatening, Hospitalization)
  Sender: FDA-Public Use
  Company Number: DE-SHR-04-024108

PATIENT
  Sex: Male

DRUGS (2)
  1. FLUDARA [Suspect]
     Dosage: 1 CYCLE, INTRAVENOUS
     Route: 042
     Dates: start: 20040101, end: 20040101
  2. CYCLOPHOSPHAMIDE [Suspect]
     Dosage: 1 CYCLE

REACTIONS (1)
  - RENAL FAILURE ACUTE [None]
